FAERS Safety Report 7916741-5 (Version None)
Quarter: 2011Q4

REPORT INFORMATION
  Report Type: 
  Country: None (occurrence: None)
  Receive Date: 20111114
  Receipt Date: 20111108
  Transmission Date: 20120403
  Serious: Yes (Hospitalization, Other)
  Sender: FDA-Public Use
  Company Number: 2010SP009502

PATIENT
  Age: 25 Year
  Sex: Female
  Weight: 117.028 kg

DRUGS (9)
  1. NUVARING [Suspect]
     Indication: CONTRACEPTION
     Dosage: QM
     Dates: start: 20050801, end: 20080301
  2. NUVARING [Suspect]
     Indication: MENSTRUATION IRREGULAR
     Dosage: QM
     Dates: start: 20050801, end: 20080301
  3. NUVARING [Suspect]
     Indication: DYSMENORRHOEA
     Dosage: QM
     Dates: start: 20050801, end: 20080301
  4. COUMADIN [Suspect]
     Indication: THROMBOSIS
     Dates: start: 20080301, end: 20100101
  5. COUMADIN [Suspect]
     Indication: THROMBOSIS PROPHYLAXIS
     Dates: start: 20080301, end: 20100101
  6. IMITREX [Concomitant]
  7. PROZAC [Concomitant]
  8. LEVAQUIN [Suspect]
     Indication: PNEUMONIA
     Dosage: 750 MG;QD
     Dates: start: 20080304
  9. TREXIMET [Concomitant]

REACTIONS (29)
  - SINUS TACHYCARDIA [None]
  - PULMONARY HYPERTENSION [None]
  - UPPER-AIRWAY COUGH SYNDROME [None]
  - PLEURITIC PAIN [None]
  - NAUSEA [None]
  - EATING DISORDER [None]
  - HYPOAESTHESIA [None]
  - MUSCULAR WEAKNESS [None]
  - GALLBLADDER DISORDER [None]
  - TRANSIENT ISCHAEMIC ATTACK [None]
  - WEIGHT DECREASED [None]
  - LUNG INFILTRATION [None]
  - PLEURAL EFFUSION [None]
  - INTERNATIONAL NORMALISED RATIO INCREASED [None]
  - PNEUMONIA [None]
  - BONE PAIN [None]
  - OXYGEN SATURATION DECREASED [None]
  - MITRAL VALVE PROLAPSE [None]
  - PULMONARY EMBOLISM [None]
  - MIGRAINE [None]
  - OVARIAN CYST [None]
  - THROMBOSIS [None]
  - CERVICAL DYSPLASIA [None]
  - PYREXIA [None]
  - PULMONARY INFARCTION [None]
  - MITRAL VALVE INCOMPETENCE [None]
  - NASAL CONGESTION [None]
  - DEEP VEIN THROMBOSIS [None]
  - POST PROCEDURAL COMPLICATION [None]
